FAERS Safety Report 9859040 (Version 1)
Quarter: 2014Q1

REPORT INFORMATION
  Report Type: Spontaneous
  Country: US (occurrence: None)
  Receive Date: 20140129
  Receipt Date: 20140129
  Transmission Date: 20141002
  Serious: Yes (Other)
  Sender: FDA-Public Use
  Company Number: 2014-US-000590

PATIENT
  Age: 65 Year
  Sex: Male

DRUGS (1)
  1. XYREM (SODIUM OXYBATE) ORAL SOLUTION, 500 MG/ML [Suspect]
     Indication: APNOEA
     Route: 048
     Dates: start: 201201, end: 2012

REACTIONS (2)
  - Loss of consciousness [None]
  - Condition aggravated [None]
